FAERS Safety Report 8428900-6 (Version None)
Quarter: 2012Q2

REPORT INFORMATION
  Report Type: 
  Country: None (occurrence: None)
  Receive Date: 20120612
  Receipt Date: 20120529
  Transmission Date: 20120825
  Serious: Yes (Hospitalization)
  Sender: FDA-Public Use
  Company Number: KR-COVIDIEN/TYCO HEALTHCARE/MALLINCKRODT-T201202423

PATIENT
  Sex: Male
  Weight: 53.2 kg

DRUGS (20)
  1. LYRICA [Concomitant]
     Dosage: 75 MG, UNK
     Route: 048
     Dates: start: 20120405, end: 20120514
  2. HYDROMORPHONE HCL [Concomitant]
     Indication: PAIN MANAGEMENT
     Dosage: 2 MG, PRN
     Route: 048
     Dates: start: 20120510, end: 20120514
  3. URANTAC [Concomitant]
     Indication: PREMEDICATION
     Dosage: UNK
  4. PARAMACET [Concomitant]
     Indication: PAIN MANAGEMENT
     Dosage: 2 DOSES
     Route: 048
     Dates: start: 20120329, end: 20120425
  5. MG-TNA [Concomitant]
     Indication: SUPPLEMENTATION THERAPY
  6. ALL OTHER THERAPEUTIC PRODUCTS [Concomitant]
     Indication: CONSTIPATION
     Dosage: 1500 MG, UNK
     Route: 048
     Dates: start: 20120329, end: 20120514
  7. CHLORPHENIRAMINE MALEATE [Concomitant]
     Indication: PREMEDICATION
     Dosage: 4 MG, UNK
     Route: 042
     Dates: start: 20120510, end: 20120510
  8. ALL OTHER THERAPEUTIC PRODUCTS [Concomitant]
     Dosage: 100 MG
     Route: 042
     Dates: start: 20120510, end: 20120510
  9. HYCODONE [Concomitant]
     Indication: PAIN MANAGEMENT
  10. EXALGO [Suspect]
     Dosage: 4 MG, QD
     Route: 048
     Dates: start: 20120329, end: 20120509
  11. EXALGO [Suspect]
     Indication: PAIN MANAGEMENT
     Dosage: 8 MG, QD
     Route: 048
     Dates: start: 20120510, end: 20120514
  12. ALL OTHER THERAPEUTIC PRODUCTS [Concomitant]
     Indication: PAIN MANAGEMENT
     Dosage: 75 MG, PRN
     Route: 048
     Dates: start: 20120329, end: 20120509
  13. ALL OTHER THERAPEUTIC PRODUCTS [Concomitant]
     Indication: GASTROINTESTINAL DISORDER
     Dosage: 90 MG, UNK
     Route: 048
     Dates: start: 20120329, end: 20120514
  14. TRANSAMINE CAP [Concomitant]
     Indication: HAEMOPTYSIS
     Dosage: 250 MG, UNK
     Route: 048
     Dates: start: 20120429, end: 20120502
  15. DEXAMETHASONE [Concomitant]
     Indication: PREMEDICATION
     Dosage: 10 MG, UNK
     Route: 042
     Dates: start: 20120510, end: 20120510
  16. ALL OTHER THERAPEUTIC PRODUCTS [Concomitant]
     Indication: PREMEDICATION
     Dosage: 60 MG
     Dates: start: 20120510, end: 20120510
  17. AMITRIPTYLINE HCL [Concomitant]
     Indication: PAIN MANAGEMENT
     Dosage: 10 MG, UNK
     Route: 048
     Dates: start: 20120329, end: 20120514
  18. LYRICA [Concomitant]
     Indication: PAIN MANAGEMENT
     Dosage: 150 MG, UNK
     Route: 048
     Dates: start: 20120329, end: 20120404
  19. APETROLL [Concomitant]
     Indication: DECREASED APPETITE
     Dosage: 800 MG, UNK
     Route: 048
     Dates: start: 20120329, end: 20120514
  20. MONOTAXEL [Concomitant]
     Indication: PREMEDICATION

REACTIONS (1)
  - COLITIS [None]
